FAERS Safety Report 7171320-5 (Version None)
Quarter: 2010Q4

REPORT INFORMATION
  Report Type: 
  Country: None (occurrence: None)
  Receive Date: 20101217
  Receipt Date: 20101209
  Transmission Date: 20110411
  Serious: Yes (Hospitalization)
  Sender: FDA-Public Use
  Company Number: JP-ASTRAZENECA-2010SE57751

PATIENT
  Age: 75 Year
  Sex: Female
  Weight: 51 kg

DRUGS (5)
  1. IRESSA [Suspect]
     Indication: LUNG ADENOCARCINOMA
     Route: 048
     Dates: start: 20051226, end: 20060116
  2. IRESSA [Suspect]
     Route: 048
     Dates: start: 20060208, end: 20060228
  3. IRESSA [Suspect]
     Route: 048
     Dates: start: 20060306
  4. ALLEGRA [Concomitant]
     Indication: RASH
     Route: 048
     Dates: start: 20060116
  5. ROHYPNOL [Concomitant]
     Indication: INSOMNIA
     Route: 048

REACTIONS (4)
  - CARDIAC FAILURE CONGESTIVE [None]
  - HEPATIC FUNCTION ABNORMAL [None]
  - PRINZMETAL ANGINA [None]
  - RASH [None]
